FAERS Safety Report 12312693 (Version 1)
Quarter: 2016Q2

REPORT INFORMATION
  Report Type: Spontaneous
  Country: US (occurrence: US)
  Receive Date: 20160428
  Receipt Date: 20160428
  Transmission Date: 20160815
  Serious: Yes (Other)
  Sender: FDA-Public Use
  Company Number: US-PAR PHARMACEUTICAL COMPANIES-2016SCPR015378

PATIENT

DRUGS (12)
  1. DEXMEDETOMIDINE HYDROCHLORIDE. [Suspect]
     Active Substance: DEXMEDETOMIDINE HYDROCHLORIDE
     Dosage: 0.5 MCG/KG/HR
     Route: 042
  2. TRANEXAMIC ACID. [Concomitant]
     Active Substance: TRANEXAMIC ACID
     Indication: HAEMORRHAGE
     Dosage: UNK, BOLUS
     Route: 051
  3. DEXMEDETOMIDINE HYDROCHLORIDE. [Suspect]
     Active Substance: DEXMEDETOMIDINE HYDROCHLORIDE
     Indication: INDUCTION AND MAINTENANCE OF ANAESTHESIA
     Dosage: 12 MCG (0.4 MCG/KG), BOLUS
     Route: 042
  4. MIDAZOLAM [Concomitant]
     Active Substance: MIDAZOLAM\MIDAZOLAM HYDROCHLORIDE
     Indication: PREMEDICATION
     Dosage: 3 MG, UNKNOWN
     Route: 042
  5. PROPOFOL. [Concomitant]
     Active Substance: PROPOFOL
     Indication: INDUCTION AND MAINTENANCE OF ANAESTHESIA
     Dosage: UNK UNK, UNKNOWN
     Route: 042
  6. DEXMEDETOMIDINE HYDROCHLORIDE. [Suspect]
     Active Substance: DEXMEDETOMIDINE HYDROCHLORIDE
     Dosage: 0.3 MCG/KG/HR
     Route: 042
  7. KETAMINE [Concomitant]
     Active Substance: KETAMINE
     Indication: INDUCTION AND MAINTENANCE OF ANAESTHESIA
     Dosage: UNK, UNKNOWN
     Route: 042
  8. PROPOFOL. [Concomitant]
     Active Substance: PROPOFOL
     Dosage: UNK, UNKNOWN
     Route: 042
  9. REMIFENTANIL [Concomitant]
     Active Substance: REMIFENTANIL
     Indication: MAINTENANCE OF ANAESTHESIA
     Dosage: UNK, UNKNOWN
     Route: 042
  10. MIDAZOLAM [Concomitant]
     Active Substance: MIDAZOLAM\MIDAZOLAM HYDROCHLORIDE
     Indication: MAINTENANCE OF ANAESTHESIA
     Dosage: UNK UNK, UNKNOWN
     Route: 042
  11. FENTANYL. [Concomitant]
     Active Substance: FENTANYL
     Indication: GENERAL ANAESTHESIA
     Dosage: UNK, UNKNOWN
     Route: 042
  12. KETAMINE [Concomitant]
     Active Substance: KETAMINE
     Dosage: UNK, UNKNOWN
     Route: 042

REACTIONS (2)
  - Product use issue [Unknown]
  - Diabetes insipidus [Recovered/Resolved]
